FAERS Safety Report 8311517-1 (Version None)
Quarter: 2012Q2

REPORT INFORMATION
  Report Type: 
  Country: None (occurrence: None)
  Receive Date: 20120425
  Receipt Date: 20120417
  Transmission Date: 20120825
  Serious: Yes (Hospitalization)
  Sender: FDA-Public Use
  Company Number: US-BAYER-2012-010503

PATIENT
  Age: 43 Year
  Sex: Female
  Weight: 68.345 kg

DRUGS (7)
  1. TRAZODONE HCL [Concomitant]
     Dosage: 100 MG, UNK
     Dates: start: 20070616, end: 20070816
  2. GUAIFENEX PSE [Concomitant]
     Dosage: UNK
     Route: 048
     Dates: start: 20070828
  3. DEPAKOTE [Concomitant]
     Dosage: 250 MG, UNK
     Route: 048
     Dates: start: 20070616, end: 20070816
  4. NEXIUM [Concomitant]
     Dosage: 40 MG, UNK
     Route: 048
     Dates: start: 20070617, end: 20070830
  5. CYMBALTA [Concomitant]
     Dosage: 60 MG, UNK
     Route: 048
     Dates: start: 20070729, end: 20070830
  6. CARISOPRODOL [Concomitant]
     Dosage: 350 MG, UNK
     Route: 048
     Dates: start: 20070828
  7. YAZ [Suspect]
     Dosage: UNK
     Dates: start: 20070601, end: 20070901

REACTIONS (7)
  - CEREBRAL INFARCTION [None]
  - GENERAL PHYSICAL HEALTH DETERIORATION [None]
  - ANXIETY [None]
  - INTRACRANIAL VENOUS SINUS THROMBOSIS [None]
  - PAIN [None]
  - INJURY [None]
  - EMOTIONAL DISTRESS [None]
